FAERS Safety Report 13664312 (Version 2)
Quarter: 2017Q3

REPORT INFORMATION
  Report Type: Spontaneous
  Country: JP (occurrence: JP)
  Receive Date: 20170619
  Receipt Date: 20170706
  Transmission Date: 20171127
  Serious: Yes (Death)
  Sender: FDA-Public Use
  Company Number: JP-BAYER-2017-109184

PATIENT
  Sex: Female

DRUGS (1)
  1. BAYER ASPIRIN 500 MG [Suspect]
     Active Substance: ASPIRIN
     Dosage: 160 DF, ONCE
     Route: 048

REACTIONS (3)
  - Acidosis [Fatal]
  - Intentional overdose [None]
  - Toxicity to various agents [Fatal]
